FAERS Safety Report 12731416 (Version 1)
Quarter: 2016Q3

REPORT INFORMATION
  Report Type: Spontaneous
  Country: US (occurrence: US)
  Receive Date: 20160911
  Receipt Date: 20160911
  Transmission Date: 20161109
  Serious: No
  Sender: FDA-Public Use
  Company Number: None

PATIENT
  Age: 56 Year
  Sex: Male
  Weight: 72 kg

DRUGS (2)
  1. AERIUS [Suspect]
     Active Substance: DESLORATADINE
     Indication: RHINITIS ALLERGIC
     Dosage: 3 TABLETS AT BEDTIME ORAL
     Route: 048
     Dates: start: 20160906, end: 20160909
  2. MODUPROST SUPPLEMENT [Concomitant]

REACTIONS (1)
  - Sciatica [None]

NARRATIVE: CASE EVENT DATE: 20160908
